FAERS Safety Report 10741475 (Version 1)
Quarter: 2015Q1

REPORT INFORMATION
  Report Type: Spontaneous
  Country: US (occurrence: None)
  Receive Date: 20150123
  Receipt Date: 20150123
  Transmission Date: 20150721
  Serious: Yes (Other)
  Sender: FDA-Public Use
  Company Number: None

PATIENT
  Age: 57 Year
  Sex: Female
  Weight: 65.6 kg

DRUGS (2)
  1. VASOPRESSIN. [Suspect]
     Active Substance: VASOPRESSIN
     Indication: SEPTIC SHOCK
     Dosage: (INTERMITTENT)?0.04, CONTINUOUS, IV
     Route: 042
     Dates: start: 20141006, end: 20141025
  2. NOREPINEPHRINE [Suspect]
     Active Substance: NOREPINEPHRINE\NOREPINEPHRINE BITARTRATE
     Indication: SEPTIC SHOCK
     Dosage: TITRATED TO EFFECT, CONTINUOUS , IV?
     Route: 042
     Dates: start: 20141006, end: 20141112

REACTIONS (3)
  - Ischaemia [None]
  - Multi-organ failure [None]
  - Cyanosis [None]

NARRATIVE: CASE EVENT DATE: 20141006
